FAERS Safety Report 5811042-3 (Version None)
Quarter: 2008Q3

REPORT INFORMATION
  Report Type: 
  Country: None (occurrence: None)
  Receive Date: 20080716
  Receipt Date: 20080709
  Transmission Date: 20090109
  Serious: Yes (Other)
  Sender: FDA-Public Use
  Company Number: JP-JNJFOC-20080700896

PATIENT
  Age: 14 Year
  Sex: Male

DRUGS (7)
  1. RISPERDAL [Suspect]
     Route: 048
  2. RISPERDAL [Suspect]
     Indication: AUTISM
     Route: 048
  3. FLOMOX [Concomitant]
     Route: 048
  4. LYZYME [Concomitant]
     Route: 048
  5. LYZYME [Concomitant]
     Route: 048
  6. METLIGINE [Concomitant]
     Route: 048
  7. MUCODYNE [Concomitant]
     Route: 048

REACTIONS (2)
  - LEUKOPENIA [None]
  - THROMBOCYTOPENIA [None]
